FAERS Safety Report 13728034 (Version 2)
Quarter: 2017Q3

REPORT INFORMATION
  Report Type: Spontaneous
  Country: US (occurrence: US)
  Receive Date: 20170707
  Receipt Date: 20170728
  Transmission Date: 20171127
  Serious: No
  Sender: FDA-Public Use
  Company Number: US-PFIZER INC-2017293319

PATIENT
  Age: 71 Year
  Sex: Female
  Weight: 95 kg

DRUGS (10)
  1. ADVIL [Suspect]
     Active Substance: IBUPROFEN
     Indication: ARTHRALGIA
     Dosage: SIX LIQUIGELS PER 24 HOUR PERIOD
     Route: 048
  2. GABAPENTIN. [Concomitant]
     Active Substance: GABAPENTIN
     Dosage: UNK
     Dates: start: 2010
  3. ADVIL [Suspect]
     Active Substance: IBUPROFEN
     Dosage: 1200 MG, DAILY, (6 TIMES PER DAY)
     Route: 048
     Dates: end: 20170707
  4. METOPROLOL TARTRATE. [Concomitant]
     Active Substance: METOPROLOL TARTRATE
     Dosage: UNK
     Dates: start: 1990
  5. ALLEGRA-D [Concomitant]
     Active Substance: FEXOFENADINE\PSEUDOEPHEDRINE
     Dosage: UNK
     Dates: start: 2010
  6. FISH OIL [Concomitant]
     Active Substance: FISH OIL
     Dosage: UNK
     Dates: start: 2005
  7. OSTEO-BI-FLEX [Concomitant]
     Dosage: UNK
     Dates: start: 2005
  8. ADVIL [Suspect]
     Active Substance: IBUPROFEN
     Dosage: THREE LIQUIGELS PER 24 HOUR PERIOD
     Route: 048
     Dates: start: 20170602
  9. BENICAR [Concomitant]
     Active Substance: OLMESARTAN MEDOXOMIL
     Dosage: UNK
     Dates: start: 1990
  10. PREVACID [Concomitant]
     Active Substance: LANSOPRAZOLE
     Dosage: UNK
     Dates: start: 1985

REACTIONS (2)
  - Rash [Not Recovered/Not Resolved]
  - Purpura [Not Recovered/Not Resolved]

NARRATIVE: CASE EVENT DATE: 2011
